FAERS Safety Report 8123609-0 (Version None)
Quarter: 2012Q1

REPORT INFORMATION
  Report Type: 
  Country: None (occurrence: None)
  Receive Date: 20120208
  Receipt Date: 20120203
  Transmission Date: 20120608
  Serious: Yes (Hospitalization)
  Sender: FDA-Public Use
  Company Number: PHHO2010US14448

PATIENT
  Sex: Male

DRUGS (2)
  1. AFINITOR [Suspect]
     Indication: TUBEROUS SCLEROSIS
     Dosage: UNK
     Route: 048
     Dates: start: 20080801, end: 20100915
  2. AFINITOR [Suspect]
     Dosage: UNK
     Route: 048
     Dates: start: 20100922

REACTIONS (6)
  - PETECHIAE [None]
  - POST LUMBAR PUNCTURE SYNDROME [None]
  - SINUSITIS [None]
  - LEUKOCYTOSIS [None]
  - PYREXIA [None]
  - VIRAL INFECTION [None]
